FAERS Safety Report 4919485-7 (Version None)
Quarter: 2006Q1

REPORT INFORMATION
  Report Type: 
  Country: None (occurrence: None)
  Receive Date: 20060222
  Receipt Date: 20030605
  Transmission Date: 20060701
  Serious: Yes (Hospitalization, Disabling, Other)
  Sender: FDA-Public Use
  Company Number: US-MERCK-0306USA00816

PATIENT
  Age: 37 Year
  Sex: Female
  Weight: 93 kg

DRUGS (3)
  1. VIOXX [Suspect]
     Indication: PAIN
     Route: 048
     Dates: start: 20010201, end: 20010227
  2. VIOXX [Suspect]
     Route: 048
     Dates: start: 20010228, end: 20010801
  3. VIOXX [Suspect]
     Route: 048
     Dates: start: 20010228, end: 20010801

REACTIONS (42)
  - ADVERSE EVENT [None]
  - ANXIETY [None]
  - BLOOD THYROID STIMULATING HORMONE DECREASED [None]
  - BRONCHITIS [None]
  - BRONCHITIS ACUTE [None]
  - CEREBROVASCULAR ACCIDENT [None]
  - CHEST PAIN [None]
  - CHRONIC OBSTRUCTIVE PULMONARY DISEASE [None]
  - DEPRESSION [None]
  - DIZZINESS [None]
  - DYSPNOEA [None]
  - ELECTROCARDIOGRAM POOR R-WAVE PROGRESSION [None]
  - ESSENTIAL HYPERTENSION [None]
  - FOLLICULITIS [None]
  - HEADACHE [None]
  - HEART RATE INCREASED [None]
  - HYPERTENSION [None]
  - HYPOTENSION [None]
  - INCREASED UPPER AIRWAY SECRETION [None]
  - INFARCTION [None]
  - JOINT SWELLING [None]
  - NASAL CONGESTION [None]
  - NASOPHARYNGITIS [None]
  - NEUROLEPTIC MALIGNANT SYNDROME [None]
  - OEDEMA PERIPHERAL [None]
  - PAIN [None]
  - PANIC ATTACK [None]
  - PHARYNGOLARYNGEAL PAIN [None]
  - POLYARTHRITIS [None]
  - PROTEINURIA [None]
  - PRURITUS GENERALISED [None]
  - RESPIRATORY DISORDER [None]
  - RHEUMATOID ARTHRITIS [None]
  - SINUSITIS [None]
  - SPONDYLITIS [None]
  - STRESS [None]
  - SWELLING FACE [None]
  - SYSTEMIC LUPUS ERYTHEMATOSUS [None]
  - UPPER RESPIRATORY TRACT INFECTION [None]
  - URINARY TRACT INFECTION [None]
  - VASCULITIS [None]
  - WHITE BLOOD CELL COUNT DECREASED [None]
